FAERS Safety Report 11693302 (Version 1)
Quarter: 2015Q4

REPORT INFORMATION
  Report Type: Spontaneous
  Country: US (occurrence: None)
  Receive Date: 20151102
  Receipt Date: 20151102
  Transmission Date: 20160304
  Serious: No
  Sender: FDA-Public Use
  Company Number: None

PATIENT
  Age: 59 Year
  Sex: Female
  Weight: 61.24 kg

DRUGS (1)
  1. MOVIPREP [Suspect]
     Active Substance: ASCORBIC ACID\POLYETHYLENE GLYCOL 3350\POTASSIUM CHLORIDE\SODIUM ASCORBATE\SODIUM CHLORIDE\SODIUM SULFATE
     Indication: COLONOSCOPY
     Dosage: 100G/7.5G/2.691G/L.015G/5.9G/4.7G/2 POUCHES 1-POUCH PM 1-POUCH AM
     Route: 048
     Dates: start: 20151018, end: 20151019

REACTIONS (1)
  - Vomiting [None]

NARRATIVE: CASE EVENT DATE: 20151019
